FAERS Safety Report 10441147 (Version 3)
Quarter: 2014Q4

REPORT INFORMATION
  Report Type: Report from Study
  Country: US (occurrence: US)
  Receive Date: 20140909
  Receipt Date: 20141201
  Transmission Date: 20150528
  Serious: Yes (Death, Hospitalization)
  Sender: FDA-Public Use
  Company Number: US-BAYER-2014-029892

PATIENT
  Age: 76 Year
  Sex: Male
  Weight: 67.39 kg

DRUGS (1)
  1. NEXAVAR [Suspect]
     Active Substance: SORAFENIB
     Indication: HEPATOCELLULAR CARCINOMA
     Dosage: 800 MG/DAY
     Route: 048
     Dates: start: 20131024, end: 20140220

REACTIONS (7)
  - Urinary tract infection pseudomonal [None]
  - Coordination abnormal [None]
  - Enterocolitis [None]
  - Hepatocellular carcinoma [Fatal]
  - Oesophageal candidiasis [None]
  - Pancytopenia [None]
  - Benign prostatic hyperplasia [None]

NARRATIVE: CASE EVENT DATE: 20131113
